FAERS Safety Report 10368901 (Version 1)
Quarter: 2014Q1

REPORT INFORMATION
  Report Type: Spontaneous
  Country: US (occurrence: None)
  Receive Date: 20140306
  Receipt Date: 20140306
  Transmission Date: 20141002
  Serious: Yes (Other)
  Sender: FDA-Public Use
  Company Number: 163-21880-13091654

PATIENT
  Age: 88 Year
  Sex: Male

DRUGS (1)
  1. REVLIMID (LENALILDOMIDE ) (25 MILLIGRAM, CAPSULES)_ [Suspect]
     Indication: PLASMA CELL MYELOMA
     Dosage: 25 MG , CAPSULES  08/2012 - DISCONTINUED THERAPY DATE
     Route: 048
     Dates: start: 201208

REACTIONS (1)
  - Pancytopenia [None]
